FAERS Safety Report 10240992 (Version 1)
Quarter: 2014Q2

REPORT INFORMATION
  Report Type: Report from Study
  Country: PE (occurrence: PE)
  Receive Date: 20140617
  Receipt Date: 20140617
  Transmission Date: 20141212
  Serious: Yes (Death)
  Sender: FDA-Public Use
  Company Number: PE-ASTRAZENECA-2014SE44475

PATIENT
  Age: 30839 Day
  Sex: Male

DRUGS (1)
  1. ATACAND PLUS [Suspect]
     Dosage: 16 MG DAILY
     Route: 048
     Dates: start: 20120314

REACTIONS (1)
  - Death [Fatal]
